FAERS Safety Report 17261709 (Version 2)
Quarter: 2020Q2

REPORT INFORMATION
  Report Type: Spontaneous
  Country: US (occurrence: US)
  Receive Date: 20200113
  Receipt Date: 20200611
  Transmission Date: 20200713
  Serious: Yes (Hospitalization, Other)
  Sender: FDA-Public Use
  Company Number: US-GLAXOSMITHKLINE-US2020AMR003094

PATIENT
  Age: 70 Year
  Sex: Female

DRUGS (1)
  1. ADVAIR DISKUS [Suspect]
     Active Substance: FLUTICASONE PROPIONATE\SALMETEROL XINAFOATE
     Indication: PRODUCT USED FOR UNKNOWN INDICATION
     Dosage: 1 PUFF(S), BID
     Route: 065
     Dates: start: 2010

REACTIONS (11)
  - Cerebral haemorrhage [Unknown]
  - Contusion [Unknown]
  - Therapy cessation [Unknown]
  - Dyspnoea [Unknown]
  - Cerebrovascular accident [Unknown]
  - Memory impairment [Unknown]
  - Throat tightness [Unknown]
  - Expired product administered [Unknown]
  - Road traffic accident [Unknown]
  - Sternal fracture [Unknown]
  - Rib fracture [Unknown]

NARRATIVE: CASE EVENT DATE: 20170922
